FAERS Safety Report 4295462-7 (Version None)
Quarter: 2004Q1

REPORT INFORMATION
  Report Type: 
  Country: None (occurrence: None)
  Receive Date: 20040211
  Receipt Date: 20040204
  Transmission Date: 20041129
  Serious: Yes (Life-Threatening, Hospitalization, Other)
  Sender: FDA-Public Use
  Company Number: SEWYE558705FEB04

PATIENT
  Age: 61 Year
  Sex: Female

DRUGS (6)
  1. EFFEXOR [Suspect]
     Indication: MAJOR DEPRESSION
     Dosage: 75 MG 1X PER 1 DAY, ORAL; 150 MG 1X PER 1 DAY, ORAL
     Route: 048
     Dates: start: 20031027, end: 20031110
  2. EFFEXOR [Suspect]
     Indication: MAJOR DEPRESSION
     Dosage: 75 MG 1X PER 1 DAY, ORAL; 150 MG 1X PER 1 DAY, ORAL
     Route: 048
     Dates: start: 20031110, end: 20031213
  3. DEPRAKINE (VALPROATE SODIUM, , 0) [Suspect]
     Indication: MAJOR DEPRESSION
     Dosage: 500 MG 2X PER 1 DAY, ORAL
     Route: 048
     Dates: start: 20031017, end: 20031213
  4. REMERON [Concomitant]
  5. FOSAMAX [Concomitant]
  6. OPAMOX (OXAZEPAM) [Concomitant]

REACTIONS (16)
  - ABDOMINAL PAIN [None]
  - ACTIVATED PARTIAL THROMBOPLASTIN TIME PROLONGED [None]
  - ALANINE AMINOTRANSFERASE INCREASED [None]
  - ASPARTATE AMINOTRANSFERASE INCREASED [None]
  - BILIRUBIN CONJUGATED INCREASED [None]
  - BLOOD ALKALINE PHOSPHATASE INCREASED [None]
  - BLOOD BILIRUBIN INCREASED [None]
  - CHOLESTASIS [None]
  - GAMMA-GLUTAMYLTRANSFERASE INCREASED [None]
  - HEPATITIS A ANTIBODY NEGATIVE [None]
  - HEPATITIS A ANTIBODY POSITIVE [None]
  - JAUNDICE [None]
  - SERUM FERRITIN INCREASED [None]
  - URINE AMYLASE INCREASED [None]
  - VOMITING [None]
  - WHITE BLOOD CELL COUNT INCREASED [None]
